FAERS Safety Report 10214652 (Version 1)
Quarter: 2014Q2

REPORT INFORMATION
  Report Type: Spontaneous
  Country: US (occurrence: US)
  Receive Date: 20140603
  Receipt Date: 20140603
  Transmission Date: 20141212
  Serious: Yes (Other)
  Sender: FDA-Public Use
  Company Number: US-BRISTOL-MYERS SQUIBB COMPANY-20867487

PATIENT
  Sex: Female

DRUGS (1)
  1. ABILIFY TABS [Suspect]

REACTIONS (4)
  - Dementia [Unknown]
  - Parkinson^s disease [Unknown]
  - Fatigue [Unknown]
  - Depressed mood [Unknown]
